FAERS Safety Report 16263791 (Version 1)
Quarter: 2019Q2

REPORT INFORMATION
  Report Type: Spontaneous
  Country: SE (occurrence: SE)
  Receive Date: 20190502
  Receipt Date: 20190502
  Transmission Date: 20190711
  Serious: Yes (Hospitalization)
  Sender: FDA-Public Use
  Company Number: SE-009507513-1904SWE009699

PATIENT
  Age: 82 Year
  Sex: Female

DRUGS (7)
  1. SIMVASTATIN. [Suspect]
     Active Substance: SIMVASTATIN
     Dosage: PRESCRIBED DOSE: 20 MG IN THE EVENING
     Route: 048
  2. LOPERAMIDE [Suspect]
     Active Substance: LOPERAMIDE
     Dosage: PRESCRIBED DOSE: 2 (TWO) AT 8 AM AND 2 (TWO) IN THE EVENING
     Route: 048
  3. METOPROLOL. [Suspect]
     Active Substance: METOPROLOL
     Dosage: PRESCRIBED DOSE: 1 (ONE) AT 8 AM
  4. SODIUM CARBONATE [Suspect]
     Active Substance: SODIUM CARBONATE
     Dosage: PRESCRIBED DOSE: 1 G AT 8 AM, 1 AT NOON, 1G AT 4 PM AND 1G IN THE EVENING
  5. DUROFERON [Suspect]
     Active Substance: FERROUS SULFATE
     Dosage: PRESCRIBED DOSE: 100MG AT 8 AM
  6. LASIX [Suspect]
     Active Substance: FUROSEMIDE
     Dosage: PRESCRIBED DOSE: 60 MG AT 8 AM
  7. AMLORATIO [Suspect]
     Active Substance: AMLODIPINE BESYLATE
     Dosage: PRESCRIBED DOSE:  5 MG AT 8 AM

REACTIONS (4)
  - Confusional state [Unknown]
  - Dizziness [Unknown]
  - Product administration error [Unknown]
  - Accidental overdose [Unknown]

NARRATIVE: CASE EVENT DATE: 20111212
